FAERS Safety Report 18382175 (Version 6)
Quarter: 2021Q2

REPORT INFORMATION
  Report Type: Spontaneous
  Country: US (occurrence: US)
  Receive Date: 20201014
  Receipt Date: 20210406
  Transmission Date: 20210717
  Serious: No
  Sender: FDA-Public Use
  Company Number: US-PFIZER INC-2020320841

PATIENT
  Age: 57 Year
  Sex: Female

DRUGS (3)
  1. XELJANZ [Suspect]
     Active Substance: TOFACITINIB CITRATE
     Indication: PRURITUS
  2. XELJANZ [Suspect]
     Active Substance: TOFACITINIB CITRATE
     Indication: DERMATITIS ATOPIC
  3. XELJANZ [Suspect]
     Active Substance: TOFACITINIB CITRATE
     Indication: ECZEMA
     Dosage: 5 MG, 2X/DAY

REACTIONS (7)
  - Eczema [Unknown]
  - Off label use [Unknown]
  - Dizziness [Unknown]
  - Fatigue [Unknown]
  - Drug ineffective for unapproved indication [Unknown]
  - Depression [Unknown]
  - Somnolence [Unknown]
